FAERS Safety Report 6239048-3 (Version None)
Quarter: 2009Q2

REPORT INFORMATION
  Report Type: 
  Country: None (occurrence: None)
  Receive Date: 20090622
  Receipt Date: 20090615
  Transmission Date: 20091009
  Serious: Yes (Other)
  Sender: FDA-Public Use
  Company Number: PHHY2009JP24048

PATIENT
  Age: 58 Year
  Sex: Female

DRUGS (4)
  1. ZOMETA [Suspect]
     Indication: METASTASES TO BONE
     Dosage: 4 MG/ADMINISTARTION
     Route: 042
     Dates: start: 20060721, end: 20090515
  2. FEMARA [Concomitant]
     Indication: BREAST CANCER
     Dosage: 2.5 MG, UNK
     Route: 048
     Dates: start: 20060721
  3. TAXOL [Concomitant]
     Indication: BREAST CANCER
     Dosage: UNK
     Dates: start: 20060701
  4. XELODA [Concomitant]
     Indication: BREAST CANCER
     Dosage: 1800 MG, UNK
     Route: 048

REACTIONS (2)
  - OSTEONECROSIS [None]
  - TOOTH EXTRACTION [None]
